FAERS Safety Report 5080801-X (Version None)
Quarter: 2006Q3

REPORT INFORMATION
  Report Type: 
  Country: None (occurrence: None)
  Receive Date: 20060809
  Receipt Date: 20060712
  Transmission Date: 20061208
  Serious: Yes (Hospitalization, Other)
  Sender: FDA-Public Use
  Company Number: 2006AP000562

PATIENT
  Age: 9 Year
  Sex: Male

DRUGS (1)
  1. ALLOPURINOL [Suspect]
     Indication: HYPERURICAEMIA
     Dosage: SEE IMAGE
     Route: 048

REACTIONS (10)
  - ABDOMINAL PAIN [None]
  - CALCULUS URETHRAL [None]
  - CALCULUS URINARY [None]
  - GROWTH RETARDATION [None]
  - MENTAL DISORDER [None]
  - MUSCLE SPASTICITY [None]
  - PRESCRIBED OVERDOSE [None]
  - RENAL FAILURE ACUTE [None]
  - SELF MUTILATION [None]
  - STAG HORN CALCULUS [None]
